FAERS Safety Report 16048436 (Version 1)
Quarter: 2019Q1

REPORT INFORMATION
  Report Type: Spontaneous
  Country: GB (occurrence: GB)
  Receive Date: 20190307
  Receipt Date: 20190307
  Transmission Date: 20190418
  Serious: Yes (Life-Threatening)
  Sender: FDA-Public Use
  Company Number: GB-OTSUKA-2019_006620

PATIENT
  Age: 21 Year
  Sex: Male
  Weight: 120.6 kg

DRUGS (2)
  1. KALMS NIGHT [Concomitant]
     Indication: SLEEP DISORDER
     Dosage: UNK
     Route: 065
  2. ARIPIPRAZOLE. [Suspect]
     Active Substance: ARIPIPRAZOLE
     Indication: SUBSTANCE-INDUCED PSYCHOTIC DISORDER
     Dosage: 15 MG, QD
     Route: 048
     Dates: start: 20180215, end: 20180601

REACTIONS (4)
  - Product use in unapproved indication [Unknown]
  - Tearfulness [Recovered/Resolved]
  - Depression suicidal [Recovered/Resolved]
  - Suicidal ideation [Recovered/Resolved]

NARRATIVE: CASE EVENT DATE: 20180215
